FAERS Safety Report 10496526 (Version 2)
Quarter: 2014Q4

REPORT INFORMATION
  Report Type: Spontaneous
  Country: US (occurrence: US)
  Receive Date: 20141004
  Receipt Date: 20141031
  Transmission Date: 20150528
  Serious: No
  Sender: FDA-Public Use
  Company Number: US-009507513-1409USA003929

PATIENT
  Sex: Female

DRUGS (1)
  1. NASONEX [Suspect]
     Active Substance: MOMETASONE FUROATE
     Dosage: STRENGTH: 50 (UNITS NOT REPORTED), TWO SPRAYS IN EACH NOSTRILL
     Route: 045
     Dates: start: 2004

REACTIONS (3)
  - Wrong technique in drug usage process [Unknown]
  - Product container issue [Unknown]
  - No adverse event [Unknown]
